FAERS Safety Report 15497060 (Version 1)
Quarter: 2018Q4

REPORT INFORMATION
  Report Type: Spontaneous
  Country: GB (occurrence: GB)
  Receive Date: 20181015
  Receipt Date: 20181015
  Transmission Date: 20190205
  Serious: Yes (Death, Hospitalization)
  Sender: FDA-Public Use
  Company Number: GB-B.I. PHARMACEUTICALS,INC./RIDGEFIELD-2018-12-003414

PATIENT
  Age: 94 Year
  Sex: Female
  Weight: 60 kg

DRUGS (1)
  1. PRADAXA [Suspect]
     Active Substance: DABIGATRAN ETEXILATE MESYLATE
     Indication: ATRIAL FIBRILLATION
     Dosage: NOT SURE
     Route: 048
     Dates: end: 20180910

REACTIONS (5)
  - Mouth haemorrhage [Recovered/Resolved]
  - Coagulation time prolonged [Recovered/Resolved]
  - Pneumonia [Fatal]
  - Pulmonary haemorrhage [Recovered/Resolved]
  - Epistaxis [Recovered/Resolved]
